FAERS Safety Report 5476140-5 (Version None)
Quarter: 2007Q4

REPORT INFORMATION
  Report Type: 
  Country: None (occurrence: None)
  Receive Date: 20071003
  Receipt Date: 20070924
  Transmission Date: 20080405
  Serious: Yes (Hospitalization, Other)
  Sender: FDA-Public Use
  Company Number: GB-JNJFOC-20070303245

PATIENT
  Age: 43 Year
  Sex: Male

DRUGS (12)
  1. DOXORUBICIN HCL [Suspect]
     Indication: BURKITT'S LYMPHOMA
     Dosage: 6DF CYCLICAL  START DATE: 1998
     Route: 042
  2. CYCLOPHOSPHAMIDE [Suspect]
     Indication: BURKITT'S LYMPHOMA
     Dosage: 6DF CYCLICAL  START DATE: 1998
     Route: 042
  3. CYTARABINE [Suspect]
     Indication: BURKITT'S LYMPHOMA
     Route: 037
  4. HYDROCORTISONE [Suspect]
     Indication: BURKITT'S LYMPHOMA
     Dosage: CYCLICAL
     Route: 048
  5. METHOTREXATE [Suspect]
     Indication: BURKITT'S LYMPHOMA
     Dosage: START DATE: 1998
     Route: 037
  6. PREDNISOLONE [Suspect]
     Indication: BURKITT'S LYMPHOMA
     Dosage: 6 CYCLES, CUMULATIVE DOSE OF 2.35G OVER 3 AND A HALF MONTHS
     Route: 048
  7. RITONAVIR [Suspect]
     Indication: ACQUIRED IMMUNODEFICIENCY SYNDROME
     Route: 048
  8. SAQUINAVIR [Suspect]
     Indication: ACQUIRED IMMUNODEFICIENCY SYNDROME
     Route: 048
  9. VINCRISTINE [Suspect]
     Indication: BURKITT'S LYMPHOMA
     Dosage: 6DF 1 CYCLICAL
     Route: 042
  10. CYTARABINE [Concomitant]
     Route: 048
  11. TRIMETHOPRIM [Concomitant]
     Indication: PNEUMOCYSTIS JIROVECI INFECTION
     Route: 048
  12. SULFAMETHOXAZOLE [Concomitant]
     Route: 065

REACTIONS (8)
  - BACK PAIN [None]
  - BLOOD CHOLESTEROL INCREASED [None]
  - BLOOD TRIGLYCERIDES INCREASED [None]
  - OSTEONECROSIS [None]
  - OSTEOPOROSIS [None]
  - PAIN IN EXTREMITY [None]
  - SPINAL COMPRESSION FRACTURE [None]
  - SPINAL FRACTURE [None]
